FAERS Safety Report 25144194 (Version 1)
Quarter: 2025Q2

REPORT INFORMATION
  Report Type: Spontaneous
  Country: RU (occurrence: RU)
  Receive Date: 20250401
  Receipt Date: 20250401
  Transmission Date: 20250717
  Serious: Yes (Other)
  Sender: ALKEM
  Company Number: None

PATIENT
  Age: 35 Year
  Sex: Male

DRUGS (4)
  1. QUETIAPINE FUMARATE [Interacting]
     Active Substance: QUETIAPINE FUMARATE
     Indication: Depression
     Dosage: 300 MILLIGRAM, QD
     Route: 065
  2. AGOMELATINE [Interacting]
     Active Substance: AGOMELATINE
     Indication: Depression
     Route: 065
  3. AGOMELATINE [Interacting]
     Active Substance: AGOMELATINE
     Dosage: 50 MILLIGRAM, QD (INCREASED DOSE)
     Route: 065
  4. MELATONIN [Interacting]
     Active Substance: MELATONIN
     Indication: Depression
     Route: 065

REACTIONS (4)
  - Neurotoxicity [Unknown]
  - Drug interaction [Unknown]
  - Sedation complication [Unknown]
  - Weight increased [Unknown]
